FAERS Safety Report 6667705-3 (Version None)
Quarter: 2010Q2

REPORT INFORMATION
  Report Type: 
  Country: None (occurrence: None)
  Receive Date: 20100405
  Receipt Date: 20100401
  Transmission Date: 20101027
  Serious: Yes (Life-Threatening)
  Sender: FDA-Public Use
  Company Number: UA-B.I. PHARMACEUTICALS,INC./RIDGEFIELD-2010-AP-00177AP

PATIENT
  Age: 55 Year
  Sex: Female

DRUGS (4)
  1. MOVALIS [Suspect]
     Indication: OSTEOCHONDROSIS
     Dosage: EOD
     Route: 030
     Dates: start: 20100324, end: 20100328
  2. MOVALIS [Suspect]
     Indication: OSTEOARTHRITIS
  3. CARDIOMAGNYL (ASA) [Concomitant]
     Dosage: 75 MG
  4. MANINIL [Concomitant]
     Indication: DIABETES MELLITUS

REACTIONS (7)
  - ACUTE CORONARY SYNDROME [None]
  - ANGINA PECTORIS [None]
  - ASTHENIA [None]
  - BLOOD PRESSURE INCREASED [None]
  - DYSPNOEA [None]
  - ENCEPHALOPATHY [None]
  - HYPERHIDROSIS [None]
